FAERS Safety Report 5386062-6 (Version None)
Quarter: 2007Q3

REPORT INFORMATION
  Report Type: 
  Country: None (occurrence: None)
  Receive Date: 20070710
  Receipt Date: 20070625
  Transmission Date: 20080115
  Serious: Yes (Other)
  Sender: FDA-Public Use
  Company Number: 2007SI003677

PATIENT
  Age: 64 Year
  Sex: Female

DRUGS (6)
  1. OXYBUTYNIN CHLORIDE [Suspect]
     Indication: POLLAKIURIA
     Dosage: 10 MG; DAILY; ORAL
     Route: 048
     Dates: start: 20061101, end: 20070420
  2. LEVOTHYROXINE SODIUM (CON.) [Concomitant]
  3. MELOXICAM (CON.) [Concomitant]
  4. DICLOFENAC SODIUM (CON.) [Concomitant]
  5. CALCIUM D3 (CON.) [Concomitant]
  6. ACETYLSALICYLIC ACID (CON.) [Concomitant]

REACTIONS (11)
  - ASTHENIA [None]
  - BACK PAIN [None]
  - BLOOD PRESSURE INCREASED [None]
  - FATIGUE [None]
  - HYPERSENSITIVITY [None]
  - LABORATORY TEST ABNORMAL [None]
  - MUSCLE INJURY [None]
  - MUSCLE SPASMS [None]
  - MUSCULOSKELETAL STIFFNESS [None]
  - MYALGIA [None]
  - THYROID FUNCTION TEST ABNORMAL [None]
